FAERS Safety Report 5289544-0 (Version None)
Quarter: 2007Q1

REPORT INFORMATION
  Report Type: 
  Country: None (occurrence: None)
  Receive Date: 20070118
  Receipt Date: 20060922
  Transmission Date: 20070707
  Serious: Yes (Other)
  Sender: FDA-Public Use
  Company Number: HQWYE705218AUG06

PATIENT
  Age: 81 Year
  Sex: Female
  Weight: 59.93 kg

DRUGS (3)
  1. ADVIL PM [Suspect]
     Indication: PAIN
     Dosage: 2 CAPLETS DAILY, ORAL
     Route: 048
     Dates: start: 20060701
  2. FOSAMAX [Concomitant]
  3. DAPSONE [Concomitant]

REACTIONS (1)
  - DRUG INEFFECTIVE [None]
